FAERS Safety Report 4284167-4 (Version None)
Quarter: 2004Q1

REPORT INFORMATION
  Report Type: 
  Country: None (occurrence: None)
  Receive Date: 20040203
  Receipt Date: 20040127
  Transmission Date: 20041129
  Serious: Yes (Hospitalization)
  Sender: FDA-Public Use
  Company Number: FR-GLAXOSMITHKLINE-B0321133A

PATIENT
  Age: 42 Year
  Sex: Female

DRUGS (1)
  1. CLAMOXYL [Suspect]
     Indication: OTITIS MEDIA ACUTE
     Route: 048
     Dates: start: 20030423

REACTIONS (7)
  - ABDOMINAL PAIN [None]
  - BLOOD PRESSURE SYSTOLIC INCREASED [None]
  - DIARRHOEA [None]
  - HYPOTENSION [None]
  - MALAISE [None]
  - RASH [None]
  - VOMITING [None]
